FAERS Safety Report 23091127 (Version 1)
Quarter: 2023Q4

REPORT INFORMATION
  Report Type: Spontaneous
  Country: GB (occurrence: GB)
  Receive Date: 20231020
  Receipt Date: 20231020
  Transmission Date: 20240109
  Serious: Yes (Other)
  Sender: FDA-Public Use
  Company Number: None

PATIENT
  Age: 61 Year
  Sex: Female
  Weight: 49 kg

DRUGS (3)
  1. DICLOFENAC DIETHYLAMINE [Suspect]
     Active Substance: DICLOFENAC DIETHYLAMINE
     Indication: Product used for unknown indication
     Dosage: THERAPY END DATE : NASK
     Route: 065
     Dates: start: 20230925
  2. HYDROXOCOBALAMIN [Concomitant]
     Active Substance: HYDROXOCOBALAMIN
     Indication: Product used for unknown indication
     Dosage: UNIT DOSE : 1 DF, FREQUENCY : 1 IN 3 MONTHS
     Route: 030
     Dates: start: 20140702
  3. ZINERYT [Concomitant]
     Indication: Product used for unknown indication
     Dosage: 2 DOSAGE FORMS DAILY; APPLY, UNIT DOSE : 1 DF, BD
     Route: 061
     Dates: start: 20210816

REACTIONS (1)
  - Application site rash [Recovered/Resolved]
